FAERS Safety Report 7861101-9 (Version None)
Quarter: 2011Q4

REPORT INFORMATION
  Report Type: 
  Country: None (occurrence: None)
  Receive Date: 20111027
  Receipt Date: 20111017
  Transmission Date: 20120403
  Serious: Yes (Life-Threatening, Other)
  Sender: FDA-Public Use
  Company Number: US-BAYER-2010-003178

PATIENT
  Age: 30 Year
  Sex: Female
  Weight: 53 kg

DRUGS (7)
  1. ZOLOFT [Concomitant]
  2. XANAX [Concomitant]
  3. PROZAC [Concomitant]
  4. YAZ [Suspect]
     Indication: ORAL CONTRACEPTION
     Dosage: UNK
     Route: 048
     Dates: start: 20080101, end: 20100101
  5. HYDROCODONE BITARTRATE [Concomitant]
  6. OXYCODONE HCL [Concomitant]
  7. DROSPIRENONE AND ETHINYL ESTRADIOL [Suspect]
     Indication: ORAL CONTRACEPTION
     Dosage: UNK
     Route: 048
     Dates: start: 20080101, end: 20100101

REACTIONS (5)
  - PAIN [None]
  - INJURY [None]
  - CHOLECYSTITIS ACUTE [None]
  - GALLBLADDER NON-FUNCTIONING [None]
  - ORGAN FAILURE [None]
